FAERS Safety Report 13954527 (Version 1)
Quarter: 2017Q3

REPORT INFORMATION
  Report Type: Spontaneous
  Country: CA (occurrence: CA)
  Receive Date: 20170911
  Receipt Date: 20170911
  Transmission Date: 20171128
  Serious: Yes (Other)
  Sender: FDA-Public Use
  Company Number: CA-MYLANLABS-2017M1054388

PATIENT
  Sex: Male

DRUGS (2)
  1. MYLAN-NITRO PATCH 0.8 [Suspect]
     Active Substance: NITROGLYCERIN
     Dosage: 0.08 MG, UNK
     Route: 062
     Dates: start: 201708
  2. MYLAN-NITRO PATCH 0.8 [Suspect]
     Active Substance: NITROGLYCERIN
     Indication: MYOCARDIAL INFARCTION
     Dosage: 0.08 MG, UNK
     Route: 062
     Dates: start: 20150901, end: 201708

REACTIONS (4)
  - Application site pruritus [Not Recovered/Not Resolved]
  - Application site pain [Not Recovered/Not Resolved]
  - Malaise [Unknown]
  - Application site erythema [Not Recovered/Not Resolved]

NARRATIVE: CASE EVENT DATE: 2017
